FAERS Safety Report 4984537-2 (Version None)
Quarter: 2006Q2

REPORT INFORMATION
  Report Type: 
  Country: None (occurrence: None)
  Receive Date: 20060421
  Receipt Date: 20060407
  Transmission Date: 20061013
  Serious: Yes (Hospitalization)
  Sender: FDA-Public Use
  Company Number: 430002E06DEU

PATIENT
  Age: 75 Year
  Sex: Male

DRUGS (3)
  1. NOVANTRONE [Suspect]
     Indication: ACUTE MYELOID LEUKAEMIA
     Dosage: NOT REPORTED, UNKNOWN
     Route: 065
  2. CYTARABINE [Suspect]
     Indication: ACUTE MYELOID LEUKAEMIA
     Dosage: NOT REPORTED, UNKNOWN
     Route: 065
  3. ETOPOSIDE [Suspect]
     Indication: ACUTE MYELOID LEUKAEMIA
     Dosage: NOT REPORTED, UNKNOWN
     Route: 065

REACTIONS (1)
  - BRONCHOPULMONARY ASPERGILLOSIS [None]
